FAERS Safety Report 4871532-7 (Version None)
Quarter: 2005Q4

REPORT INFORMATION
  Report Type: 
  Country: None (occurrence: None)
  Receive Date: 20051229
  Receipt Date: 20051214
  Transmission Date: 20060501
  Serious: Yes (Other)
  Sender: FDA-Public Use
  Company Number: US200512003068

PATIENT
  Age: 37 Year
  Sex: Male

DRUGS (4)
  1. ZYPREXA [Suspect]
     Indication: SCHIZOAFFECTIVE DISORDER
     Dosage: 10 MG, ORAL
     Route: 048
  2. DIAZEPAM [Concomitant]
  3. ARTANE [Concomitant]
  4. TRAZODONE (TRAZODONE) [Concomitant]

REACTIONS (2)
  - CHOKING [None]
  - TARDIVE DYSKINESIA [None]
